FAERS Safety Report 13019101 (Version 1)
Quarter: 2016Q4

REPORT INFORMATION
  Report Type: Spontaneous
  Country: US (occurrence: US)
  Receive Date: 20161212
  Receipt Date: 20161212
  Transmission Date: 20170207
  Serious: No
  Sender: FDA-Public Use
  Company Number: US-ROCHE-1722586

PATIENT
  Age: 60 Year
  Sex: Female
  Weight: 102.06 kg

DRUGS (14)
  1. VALIUM [Suspect]
     Active Substance: DIAZEPAM
     Indication: ANXIETY
     Dosage: ONE HALF TABLET AS NEEDED FOR CLONUS
     Route: 048
     Dates: start: 2009
  2. LYRICA [Suspect]
     Active Substance: PREGABALIN
     Indication: NEUROPATHY PERIPHERAL
     Route: 048
  3. TYSABRI [Concomitant]
     Active Substance: NATALIZUMAB
     Indication: MULTIPLE SCLEROSIS
     Dosage: BIOLOGIC TO PREVENT RELAPSE OF MS
     Route: 042
     Dates: start: 2008
  4. XANAX [Suspect]
     Active Substance: ALPRAZOLAM
     Indication: PRODUCT USED FOR UNKNOWN INDICATION
     Route: 060
  5. METOPROLOL TARTRATE. [Concomitant]
     Active Substance: METOPROLOL TARTRATE
     Indication: HYPERTENSION
     Route: 065
     Dates: start: 20121231
  6. METOPROLOL TARTRATE. [Concomitant]
     Active Substance: METOPROLOL TARTRATE
     Indication: PROPHYLAXIS
  7. NORCO [Concomitant]
     Active Substance: ACETAMINOPHEN\HYDROCODONE BITARTRATE
     Indication: INTERVERTEBRAL DISC PROTRUSION
     Dosage: STARTED 6-7 YEARS AGO.
     Route: 048
  8. LISINOPRIL. [Concomitant]
     Active Substance: LISINOPRIL
     Indication: HYPERTENSION
     Dosage: STARTED ABOUT 7-8 YEARS AGO
     Route: 065
  9. HCTZ [Concomitant]
     Active Substance: HYDROCHLOROTHIAZIDE
     Dosage: INDIACTION: DIURETIC
     Route: 065
     Dates: start: 2013
  10. VITAMIN D3 [Concomitant]
     Active Substance: CHOLECALCIFEROL
     Dosage: INDICATION: BONE DENSITY (STARTED TAKING ABOUT A YEAR AGO BECAUSE SHE DOES NOT GET OUT IN THE SUN VE
     Route: 065
  11. BUPROPION. [Concomitant]
     Active Substance: BUPROPION
     Indication: DEPRESSION
     Dosage: STARTED TAKING ABOUT 5-6 YEARS AGO
     Route: 065
  12. ENTERIC COATED ASPIRIN [Concomitant]
     Active Substance: ASPIRIN
     Dosage: INDICATION: ANTI COAGULANT. TAKING TO PREVENT CLOTS FORMING IN STENT OF HEART
     Route: 065
     Dates: start: 2013
  13. VALIUM [Suspect]
     Active Substance: DIAZEPAM
     Indication: CLONUS
  14. CLOPIDOGREL [Concomitant]
     Active Substance: CLOPIDOGREL BISULFATE
     Indication: ANTICOAGULANT THERAPY
     Route: 065
     Dates: start: 2013

REACTIONS (12)
  - Insomnia [Not Recovered/Not Resolved]
  - Irritability [Recovered/Resolved]
  - Chills [Not Recovered/Not Resolved]
  - Drug dose omission [Unknown]
  - Sedation [Unknown]
  - Hyperhidrosis [Not Recovered/Not Resolved]
  - Myalgia [Recovered/Resolved]
  - Hot flush [Unknown]
  - Nausea [Unknown]
  - Skin warm [Unknown]
  - Incorrect dose administered [Unknown]
  - Intentional product misuse [Unknown]

NARRATIVE: CASE EVENT DATE: 20160221
